FAERS Safety Report 5540829-X (Version None)
Quarter: 2007Q4

REPORT INFORMATION
  Report Type: 
  Country: None (occurrence: None)
  Receive Date: 20071129
  Receipt Date: 20070425
  Transmission Date: 20080405
  Serious: Yes (Other)
  Sender: FDA-Public Use
  Company Number: US200703004546

PATIENT
  Age: 42 Year
  Sex: Male
  Weight: 77.1 kg

DRUGS (7)
  1. ZYPREXA [Suspect]
     Dosage: 10 MG, ORAL; 5 MG, ORAL
     Route: 048
     Dates: start: 20041025, end: 20050723
  2. ZYPREXA [Suspect]
     Dosage: 10 MG, ORAL; 5 MG, ORAL
     Route: 048
     Dates: start: 20041028
  3. PAXIL [Concomitant]
  4. TRAZODONE HCL [Concomitant]
  5. WELLBUTRIN [Concomitant]
  6. EFFEXOR [Concomitant]
  7. SEROQUEL [Concomitant]

REACTIONS (8)
  - BLOOD CHOLESTEROL ABNORMAL [None]
  - BLOOD TRIGLYCERIDES INCREASED [None]
  - DIABETES MELLITUS [None]
  - DIABETIC COMA [None]
  - DIABETIC KETOACIDOSIS [None]
  - HYPERGLYCAEMIA [None]
  - HYPERTENSION [None]
  - PANCREATITIS [None]
